FAERS Safety Report 6669203-X (Version None)
Quarter: 2010Q2

REPORT INFORMATION
  Report Type: 
  Country: None (occurrence: None)
  Receive Date: 20100406
  Receipt Date: 20100325
  Transmission Date: 20101027
  Serious: Yes (Hospitalization)
  Sender: FDA-Public Use
  Company Number: US-WYE-H14359810

PATIENT
  Sex: Male

DRUGS (1)
  1. TORISEL [Suspect]

REACTIONS (1)
  - HALLUCINATION [None]
